FAERS Safety Report 6334314-5 (Version None)
Quarter: 2009Q3

REPORT INFORMATION
  Report Type: 
  Country: None (occurrence: None)
  Receive Date: 20090829
  Receipt Date: 20090806
  Transmission Date: 20100115
  Serious: No
  Sender: FDA-Public Use
  Company Number: US-ABBOTT-09P-163-0590361-00

PATIENT
  Sex: Male
  Weight: 68.1 kg

DRUGS (3)
  1. SIMCOR [Suspect]
     Indication: LOW DENSITY LIPOPROTEIN INCREASED
     Dosage: 500MG/20MG
  2. LISINOPRIL [Concomitant]
     Indication: DRUG USE FOR UNKNOWN INDICATION
  3. GLAUCOMA EYE DROPS [Concomitant]
     Indication: GLAUCOMA

REACTIONS (3)
  - ASTHENIA [None]
  - FATIGUE [None]
  - FLUSHING [None]
